FAERS Safety Report 11540572 (Version 1)
Quarter: 2015Q3

REPORT INFORMATION
  Report Type: Spontaneous
  Country: US (occurrence: US)
  Receive Date: 20150923
  Receipt Date: 20150923
  Transmission Date: 20151125
  Serious: No
  Sender: FDA-Public Use
  Company Number: US-BEH-2015050089

PATIENT
  Sex: Female
  Weight: 87 kg

DRUGS (19)
  1. FOLIC ACID. [Concomitant]
     Active Substance: FOLIC ACID
  2. KEFLEX [Concomitant]
     Active Substance: CEPHALEXIN
  3. CYMBALTA [Concomitant]
     Active Substance: DULOXETINE HYDROCHLORIDE
  4. PREDNISONE. [Concomitant]
     Active Substance: PREDNISONE
  5. TOPROL XL [Concomitant]
     Active Substance: METOPROLOL SUCCINATE
  6. QVAR [Concomitant]
     Active Substance: BECLOMETHASONE DIPROPIONATE
  7. DIOVAN [Concomitant]
     Active Substance: VALSARTAN
  8. IRON [Concomitant]
     Active Substance: IRON
  9. PRIVIGEN [Suspect]
     Active Substance: HUMAN IMMUNOGLOBULIN G
     Indication: DERMATOMYOSITIS
     Dosage: 5 GM VIALS (2000 MG/KG AS DIRECTED)
     Route: 042
  10. CALCIUM [Concomitant]
     Active Substance: CALCIUM
  11. FLEXERIL [Concomitant]
     Active Substance: CYCLOBENZAPRINE HYDROCHLORIDE
  12. ALBUTEROL. [Concomitant]
     Active Substance: ALBUTEROL
  13. AMOX TR-K [Concomitant]
  14. NEXIUM [Concomitant]
     Active Substance: ESOMEPRAZOLE MAGNESIUM
  15. LEVOTHYROXINE. [Concomitant]
     Active Substance: LEVOTHYROXINE
  16. VITAMIN D [Concomitant]
     Active Substance: CHOLECALCIFEROL
  17. METHOTREXATE [Concomitant]
     Active Substance: METHOTREXATE
  18. TRAMADOL. [Concomitant]
     Active Substance: TRAMADOL
  19. ASPIRIN. [Concomitant]
     Active Substance: ASPIRIN

REACTIONS (2)
  - Pruritus [Unknown]
  - Urticaria [Unknown]
